FAERS Safety Report 15814933 (Version 2)
Quarter: 2019Q1

REPORT INFORMATION
  Report Type: Spontaneous
  Country: FR (occurrence: FR)
  Receive Date: 20190111
  Receipt Date: 20190204
  Transmission Date: 20190417
  Serious: Yes (Hospitalization)
  Sender: FDA-Public Use
  Company Number: FR-ACCORD-101611

PATIENT
  Age: 41 Year
  Sex: Male
  Weight: 72 kg

DRUGS (3)
  1. DOCETAXEL?ACCORD [Suspect]
     Active Substance: DOCETAXEL
     Indication: LUNG ADENOCARCINOMA STAGE III
     Route: 042
     Dates: start: 20180123, end: 20180123
  2. ONDANSETRON [Concomitant]
     Active Substance: ONDANSETRON
     Indication: LUNG ADENOCARCINOMA STAGE III
     Route: 042
     Dates: start: 20180123, end: 20180123
  3. METHYLPREDNISOLONE. [Concomitant]
     Active Substance: METHYLPREDNISOLONE
     Indication: LUNG ADENOCARCINOMA STAGE III
     Route: 042
     Dates: start: 20180123, end: 20180123

REACTIONS (2)
  - Pleural effusion [Recovering/Resolving]
  - Pneumothorax [Recovered/Resolved]

NARRATIVE: CASE EVENT DATE: 20180209
